FAERS Safety Report 9715606 (Version 1)
Quarter: 2013Q4

REPORT INFORMATION
  Report Type: Spontaneous
  Country: US (occurrence: US)
  Receive Date: 20131127
  Receipt Date: 20131127
  Transmission Date: 20140711
  Serious: No
  Sender: FDA-Public Use
  Company Number: US-009507513-1311USA000801

PATIENT
  Age: 49 Year
  Sex: Female

DRUGS (8)
  1. VICTRELIS [Suspect]
     Indication: HEPATITIS C
     Dosage: 800 MG, THREE TIMES DAILY
     Route: 048
     Dates: start: 201304
  2. PREMPRO [Concomitant]
  3. PROZAC [Concomitant]
  4. LEVOTHYROXINE SODIUM [Concomitant]
  5. METHADONE HYDROCHLORIDE [Concomitant]
  6. OXYBUTYNIN [Concomitant]
  7. VITAMIN D (UNSPECIFIED) [Concomitant]
  8. OMEGA-3 MARINE TRIGLYCERIDES [Concomitant]

REACTIONS (2)
  - Oral mucosal blistering [Unknown]
  - Fatigue [Unknown]
